FAERS Safety Report 18264988 (Version 1)
Quarter: 2020Q3

REPORT INFORMATION
  Report Type: Spontaneous
  Country: US (occurrence: US)
  Receive Date: 20200914
  Receipt Date: 20200914
  Transmission Date: 20201103
  Serious: Yes (Death, Hospitalization)
  Sender: FDA-Public Use
  Company Number: US-JNJFOC-A-US2020-206618

PATIENT
  Age: 64 Year
  Sex: Female
  Weight: 65.83 kg

DRUGS (2)
  1. VELETRI [Suspect]
     Active Substance: EPOPROSTENOL
     Indication: PULMONARY ARTERIAL HYPERTENSION
     Dosage: 25 NG/KG, PER MIN
     Route: 042
  2. OPSUMIT [Suspect]
     Active Substance: MACITENTAN
     Indication: PULMONARY ARTERIAL HYPERTENSION
     Dosage: 10 MG, QD
     Route: 048

REACTIONS (6)
  - Death [Fatal]
  - Fluid retention [Unknown]
  - Blood potassium decreased [Unknown]
  - Hypotension [Unknown]
  - Hospitalisation [Unknown]
  - Adverse event [Unknown]

NARRATIVE: CASE EVENT DATE: 202008
